FAERS Safety Report 14295653 (Version 1)
Quarter: 2017Q4

REPORT INFORMATION
  Report Type: Spontaneous
  Country: US (occurrence: US)
  Receive Date: 20171215
  Receipt Date: 20171215
  Transmission Date: 20180321
  Serious: No
  Sender: FDA-Public Use
  Company Number: None

PATIENT
  Age: 80 Year
  Sex: Male

DRUGS (1)
  1. XTANDI [Suspect]
     Active Substance: ENZALUTAMIDE
     Indication: NEOPLASM PROSTATE
     Route: 048
     Dates: start: 20170428, end: 20171201

REACTIONS (6)
  - Asthenia [None]
  - Cerebrovascular accident [None]
  - Headache [None]
  - Hot flush [None]
  - Weight decreased [None]
  - Back pain [None]

NARRATIVE: CASE EVENT DATE: 20171201
